FAERS Safety Report 4586759-1 (Version None)
Quarter: 2005Q1

REPORT INFORMATION
  Report Type: 
  Country: None (occurrence: None)
  Receive Date: 20050218
  Receipt Date: 20050207
  Transmission Date: 20050727
  Serious: Yes (Other)
  Sender: FDA-Public Use
  Company Number: US-BRISTOL-MYERS SQUIBB COMPANY-12854832

PATIENT
  Age: 5 Decade
  Sex: Male
  Weight: 77 kg

DRUGS (3)
  1. MAXIPIME [Suspect]
     Indication: PROSTATE INFECTION
     Route: 042
  2. MAXIPIME [Suspect]
     Indication: PROSTATITIS
     Route: 042
  3. RIFAMPIN [Concomitant]

REACTIONS (17)
  - ASTHENIA [None]
  - CONSTIPATION [None]
  - DERMATITIS CONTACT [None]
  - DIARRHOEA [None]
  - DYSPHAGIA [None]
  - DYSURIA [None]
  - FEELING ABNORMAL [None]
  - GASTROINTESTINAL PAIN [None]
  - HEPATIC CYST [None]
  - HEPATIC FUNCTION ABNORMAL [None]
  - HYPERSENSITIVITY [None]
  - INFLUENZA LIKE ILLNESS [None]
  - MELAENA [None]
  - RENAL IMPAIRMENT [None]
  - RENAL PAIN [None]
  - SKIN DISCOLOURATION [None]
  - TESTICULAR PAIN [None]
